FAERS Safety Report 19313107 (Version 1)
Quarter: 2021Q2

REPORT INFORMATION
  Report Type: Spontaneous
  Country: US (occurrence: US)
  Receive Date: 20210526
  Receipt Date: 20210526
  Transmission Date: 20210717
  Serious: Yes (Life-Threatening, Hospitalization, Disabling, Other)
  Sender: FDA-Public Use
  Company Number: None

PATIENT
  Age: 56 Year
  Sex: Female
  Weight: 56.25 kg

DRUGS (8)
  1. VITAMIN B12 [Concomitant]
     Active Substance: CYANOCOBALAMIN
  2. DAILY VITAMIN [Concomitant]
     Active Substance: VITAMINS
  3. MELATONIN [Concomitant]
     Active Substance: MELATONIN
  4. KENALOG?40 [Suspect]
     Active Substance: TRIAMCINOLONE ACETONIDE
     Indication: BACK PAIN
     Dosage: ?          QUANTITY:1 INJECTION(S);OTHER FREQUENCY:AS DIRECTED;?
     Route: 008
  5. FOLIC ACID. [Concomitant]
     Active Substance: FOLIC ACID
  6. ALPRAZOLAM. [Concomitant]
     Active Substance: ALPRAZOLAM
  7. OXYCODONE HYDROCHLORIDE. [Concomitant]
     Active Substance: OXYCODONE HYDROCHLORIDE
  8. PANTOPRAZOLE SODIUM. [Concomitant]
     Active Substance: PANTOPRAZOLE SODIUM

REACTIONS (11)
  - Contusion [None]
  - Skin haemorrhage [None]
  - Product use issue [None]
  - Spinal pain [None]
  - Spinal shock [None]
  - Iatrogenic injury [None]
  - Ecchymosis [None]
  - Monoplegia [None]
  - Cerebrovascular accident [None]
  - Post procedural complication [None]
  - Heart rate increased [None]

NARRATIVE: CASE EVENT DATE: 20200729
